FAERS Safety Report 15800138 (Version 1)
Quarter: 2019Q1

REPORT INFORMATION
  Report Type: Spontaneous
  Country: GB (occurrence: GB)
  Receive Date: 20190108
  Receipt Date: 20190108
  Transmission Date: 20190417
  Serious: Yes (Other)
  Sender: FDA-Public Use
  Company Number: PHHY2019GB001307

PATIENT
  Age: 58 Year
  Sex: Female
  Weight: 82 kg

DRUGS (5)
  1. AMOXICILLIN. [Suspect]
     Active Substance: AMOXICILLIN
     Indication: PRODUCT USED FOR UNKNOWN INDICATION
     Dosage: 1500 MG, QD
     Route: 065
     Dates: start: 20181205
  2. SALBUTAMOL [Concomitant]
     Active Substance: ALBUTEROL
     Indication: PRODUCT USED FOR UNKNOWN INDICATION
     Dosage: 2 DF, UNK (UP TO FOUR TIMES A DAY)
     Route: 055
     Dates: start: 20180928
  3. BRALTUS [Concomitant]
     Active Substance: TIOTROPIUM BROMIDE
     Indication: PRODUCT USED FOR UNKNOWN INDICATION
     Dosage: 1 DF, UNK (INHALE THE CONTENTS)
     Route: 065
     Dates: start: 20180928, end: 20181205
  4. FOSTAIR [Concomitant]
     Active Substance: BECLOMETHASONE\FORMOTEROL
     Indication: PRODUCT USED FOR UNKNOWN INDICATION
     Dosage: 4 DF, QD (INHALE)
     Route: 055
     Dates: start: 20181205
  5. AVAMYS [Concomitant]
     Active Substance: FLUTICASONE FUROATE
     Indication: PRODUCT USED FOR UNKNOWN INDICATION
     Dosage: 2 DF, QD (IN EACH NOSTRIL)
     Route: 045
     Dates: start: 20181205

REACTIONS (2)
  - Rash macular [Recovering/Resolving]
  - Erythema [Recovering/Resolving]

NARRATIVE: CASE EVENT DATE: 20181205
